FAERS Safety Report 6076401-5 (Version None)
Quarter: 2009Q1

REPORT INFORMATION
  Report Type: 
  Country: None (occurrence: None)
  Receive Date: 20090209
  Receipt Date: 20090121
  Transmission Date: 20090719
  Serious: Yes (Hospitalization)
  Sender: FDA-Public Use
  Company Number: 2009S1001240

PATIENT
  Age: 17 Year
  Sex: Male

DRUGS (1)
  1. ISOTRETINOIN [Suspect]
     Indication: ACNE
     Dosage: 20 MG;TWICE A DAY;ORAL
     Route: 048

REACTIONS (6)
  - DIZZINESS [None]
  - DRY SKIN [None]
  - INTENTIONAL OVERDOSE [None]
  - MYALGIA [None]
  - NAUSEA [None]
  - SKIN EXFOLIATION [None]
